FAERS Safety Report 13441732 (Version 2)
Quarter: 2017Q2

REPORT INFORMATION
  Report Type: Spontaneous
  Country: HU (occurrence: HU)
  Receive Date: 20170414
  Receipt Date: 20170505
  Transmission Date: 20170830
  Serious: Yes (Hospitalization, Other)
  Sender: FDA-Public Use
  Company Number: HU-BRISTOL-MYERS SQUIBB COMPANY-BMS-2017-031433

PATIENT
  Age: 83 Year
  Sex: Female

DRUGS (9)
  1. ELIQUIS [Suspect]
     Active Substance: APIXABAN
     Indication: PRODUCT USED FOR UNKNOWN INDICATION
     Dosage: 2.5 MG, QD
     Route: 048
     Dates: start: 20161211
  2. ELIQUIS [Suspect]
     Active Substance: APIXABAN
     Indication: PRODUCT USED FOR UNKNOWN INDICATION
     Dosage: 2.5 MG, QD
     Route: 048
     Dates: start: 201702
  3. SP 54 [Suspect]
     Active Substance: PENTOSAN POLYSULFATE SODIUM
     Indication: PRODUCT USED FOR UNKNOWN INDICATION
     Dosage: 3 DF, BID
     Route: 048
  4. ELIQUIS [Suspect]
     Active Substance: APIXABAN
     Indication: CEREBROVASCULAR ACCIDENT PROPHYLAXIS
     Dosage: 2.5 MG, BID
     Route: 048
     Dates: start: 20161205, end: 20161210
  5. ELIQUIS [Suspect]
     Active Substance: APIXABAN
     Indication: PRODUCT USED FOR UNKNOWN INDICATION
     Dosage: 2.5 MG, QD
     Route: 048
  6. COVEREX AS [Concomitant]
     Active Substance: PERINDOPRIL ARGININE
     Indication: BLOOD PRESSURE INCREASED
     Route: 065
  7. NOCLAUD [Suspect]
     Active Substance: CILOSTAZOL
     Indication: PRODUCT USED FOR UNKNOWN INDICATION
     Dosage: 50 MG, BID
     Route: 048
  8. TENSIOMIN [Concomitant]
     Active Substance: CAPTOPRIL
     Indication: BLOOD PRESSURE INCREASED
     Route: 065
  9. CATAFLAM                           /00372302/ [Concomitant]
     Active Substance: DICLOFENAC POTASSIUM
     Indication: PRODUCT USED FOR UNKNOWN INDICATION
     Route: 048

REACTIONS (10)
  - Epilepsy [Not Recovered/Not Resolved]
  - Haematemesis [Not Recovered/Not Resolved]
  - Haemorrhage [Recovered/Resolved]
  - Rectal haemorrhage [Not Recovered/Not Resolved]
  - Prescribed underdose [Unknown]
  - Surgery [Recovered/Resolved]
  - Wrong technique in product usage process [Recovered/Resolved]
  - Diarrhoea [Not Recovered/Not Resolved]
  - Vascular occlusion [Recovered/Resolved]
  - Off label use [None]

NARRATIVE: CASE EVENT DATE: 201612
